FAERS Safety Report 14308537 (Version 3)
Quarter: 2018Q1

REPORT INFORMATION
  Report Type: Report from Study
  Country: US (occurrence: US)
  Receive Date: 20171220
  Receipt Date: 20180209
  Transmission Date: 20180509
  Serious: Yes (Other)
  Sender: FDA-Public Use
  Company Number: US-BAYER-2017-243472

PATIENT
  Age: 69 Year
  Sex: Male
  Weight: 88.45 kg

DRUGS (10)
  1. ACETYLSALICYLIC ACID({=100 MG) [Suspect]
     Active Substance: ASPIRIN
     Indication: PRODUCT USED FOR UNKNOWN INDICATION
     Dosage: 81 MG, QD
     Route: 065
     Dates: start: 1990
  2. FUROSEMIDE. [Concomitant]
     Active Substance: FUROSEMIDE
     Indication: DIURETIC THERAPY
     Dosage: 40 MG, QD
     Route: 065
     Dates: start: 2015
  3. RANEXA [Concomitant]
     Active Substance: RANOLAZINE
     Indication: ANTICOAGULANT THERAPY
     Dosage: 500 MG, BID
     Route: 065
     Dates: start: 2013
  4. LOSARTAN. [Concomitant]
     Active Substance: LOSARTAN
     Dosage: 25 MG, QD
     Route: 065
     Dates: start: 2009
  5. LEVOTHYROXINE. [Concomitant]
     Active Substance: LEVOTHYROXINE
     Indication: THYROID DISORDER
     Dosage: 150 ?G, UNK
     Route: 065
     Dates: start: 1990
  6. ATORVASTATIN [Concomitant]
     Active Substance: ATORVASTATIN
     Indication: BLOOD CHOLESTEROL INCREASED
     Dosage: 40 MG, QD
     Route: 065
     Dates: start: 1997
  7. AMIODARONE [Concomitant]
     Active Substance: AMIODARONE
     Dosage: 200 MG, BID
     Route: 065
     Dates: start: 2016
  8. XARELTO [Suspect]
     Active Substance: RIVAROXABAN
     Indication: ARRHYTHMIA
     Dosage: 15 MG, QD
     Route: 048
     Dates: start: 201701
  9. SPIRONOLACTONE. [Concomitant]
     Active Substance: SPIRONOLACTONE
     Dosage: 12.5 MG, QD
     Route: 065
     Dates: start: 2009
  10. METOPROLOL. [Concomitant]
     Active Substance: METOPROLOL
     Indication: HYPERTENSION
     Dosage: 25 MG, TID
     Route: 065
     Dates: start: 2007

REACTIONS (3)
  - Joint injury [Recovered/Resolved]
  - Contusion [Not Recovered/Not Resolved]
  - Traumatic haemorrhage [Recovered/Resolved]

NARRATIVE: CASE EVENT DATE: 2017
